FAERS Safety Report 4698889-4 (Version None)
Quarter: 2005Q2

REPORT INFORMATION
  Report Type: 
  Country: None (occurrence: None)
  Receive Date: 20050624
  Receipt Date: 20050616
  Transmission Date: 20051028
  Serious: Yes (Other)
  Sender: FDA-Public Use
  Company Number: 200515706GDDC

PATIENT
  Age: 32 Year
  Sex: Female

DRUGS (1)
  1. BENZAMYCIN [Suspect]
     Indication: ACNE
     Route: 061
     Dates: start: 20050505, end: 20050509

REACTIONS (4)
  - ERYTHEMA [None]
  - FOLLICULITIS [None]
  - RASH PUSTULAR [None]
  - SUNBURN [None]
